FAERS Safety Report 4853343-1 (Version None)
Quarter: 2005Q4

REPORT INFORMATION
  Report Type: 
  Country: None (occurrence: None)
  Receive Date: 20051212
  Receipt Date: 20051125
  Transmission Date: 20060501
  Serious: Yes (Other)
  Sender: FDA-Public Use
  Company Number: URSO-2005-055

PATIENT
  Age: 54 Year
  Sex: Female

DRUGS (1)
  1. URSODEOXYCHOLIC ACID [Suspect]
     Dosage: 600 MG
     Dates: start: 20020123, end: 20020208

REACTIONS (1)
  - GRANULOCYTOPENIA [None]
